FAERS Safety Report 9029332 (Version 1)
Quarter: 2013Q1

REPORT INFORMATION
  Report Type: Spontaneous
  Country: US (occurrence: US)
  Receive Date: 20130125
  Receipt Date: 20130125
  Transmission Date: 20140127
  Serious: No
  Sender: FDA-Public Use
  Company Number: US-PFIZER INC-2013026927

PATIENT
  Age: 64 Year
  Sex: Female

DRUGS (10)
  1. DETROL LA [Suspect]
     Dosage: 4 MG, 1X/DAY
     Route: 048
     Dates: start: 20120712
  2. JANUMET [Concomitant]
     Dosage: 50-1000 MG, 2X/DAY
     Route: 048
     Dates: start: 20120927
  3. GLYBURIDE [Concomitant]
     Dosage: 6 MG, 2X/DAY
     Route: 048
     Dates: start: 20120924
  4. METFORMIN [Concomitant]
     Dosage: 1000 MG, 1X/DAY
     Route: 048
     Dates: start: 20120809
  5. SERTRALINE [Concomitant]
     Indication: MOOD ALTERED
     Dosage: 100 MG, 1X/DAY
     Route: 048
     Dates: start: 20120809
  6. HYDROCHLOROTHIAZIDE [Concomitant]
     Dosage: 25 MG, 1X/DAY
     Route: 048
     Dates: start: 20120809
  7. MIRAPEX [Concomitant]
     Dosage: 0.25 MG, 2X/DAY
     Route: 048
     Dates: start: 20111019
  8. LEVOTHYROXINE [Concomitant]
     Dosage: 25 UG, 1X/DAY
     Route: 048
     Dates: start: 20120207
  9. TRAMADOL [Concomitant]
     Dosage: 50 MG 1-2 TABLET, EVERY 6 HOURS PRN
     Route: 048
     Dates: start: 20120207
  10. LISINOPRIL [Concomitant]
     Dosage: 10 MG, 1X/DAY
     Route: 048
     Dates: start: 20120207

REACTIONS (1)
  - Dysuria [Unknown]
